FAERS Safety Report 9683015 (Version 1)
Quarter: 2013Q4

REPORT INFORMATION
  Report Type: Spontaneous
  Country: US (occurrence: None)
  Receive Date: 20131111
  Receipt Date: 20131111
  Transmission Date: 20140711
  Serious: No
  Sender: FDA-Public Use
  Company Number: None

PATIENT
  Age: 73 Year
  Sex: Female
  Weight: 68 kg

DRUGS (1)
  1. NEOSTIGMINE [Suspect]
     Dosage: 7 MG IV
     Route: 042

REACTIONS (2)
  - Muscular weakness [None]
  - Heart rate decreased [None]
